FAERS Safety Report 8134827-X (Version None)
Quarter: 2012Q1

REPORT INFORMATION
  Report Type: 
  Country: None (occurrence: None)
  Receive Date: 20120214
  Receipt Date: 20120131
  Transmission Date: 20120608
  Serious: Yes (Hospitalization)
  Sender: FDA-Public Use
  Company Number: DE-UCBSA-050693

PATIENT
  Sex: Female

DRUGS (3)
  1. LEFLUNOMIDE [Concomitant]
     Dates: start: 20010501, end: 20110501
  2. CIMZIA [Suspect]
     Indication: RHEUMATOID ARTHRITIS
     Route: 058
     Dates: start: 20100601
  3. METHOTREXATE [Concomitant]
     Indication: RHEUMATOID ARTHRITIS
     Dosage: 15,0 (UNSPECIFIED)

REACTIONS (1)
  - ROTATOR CUFF SYNDROME [None]
